FAERS Safety Report 21608405 (Version 1)
Quarter: 2022Q4

REPORT INFORMATION
  Report Type: Report from Study
  Country: US (occurrence: US)
  Receive Date: 20221117
  Receipt Date: 20221117
  Transmission Date: 20230113
  Serious: Yes (Other)
  Sender: FDA-Public Use
  Company Number: US-MYLANLABS-2022M1127623

PATIENT
  Sex: Male

DRUGS (1)
  1. TOPIRAMATE [Suspect]
     Active Substance: TOPIRAMATE
     Indication: Neonatal seizure
     Dosage: 3 MILLIGRAM/KILOGRAM,QD (FOURTH ANTILEISURE MEDICATION. SUSPENSION MADE USING ORA-SWEET, ORA-PLUS
     Route: 065

REACTIONS (2)
  - Necrotising colitis [Unknown]
  - Off label use [Unknown]
